FAERS Safety Report 15928661 (Version 2)
Quarter: 2019Q1

REPORT INFORMATION
  Report Type: Report from Study
  Country: US (occurrence: US)
  Receive Date: 20190206
  Receipt Date: 20190228
  Transmission Date: 20190417
  Serious: Yes (Hospitalization, Other)
  Sender: FDA-Public Use
  Company Number: US-EXELIXIS-CABO-19018577

PATIENT
  Age: 69 Year
  Sex: Female

DRUGS (19)
  1. CABOMETYX [Suspect]
     Active Substance: CABOZANTINIB S-MALATE
     Dosage: 40 MG, QD
     Route: 048
     Dates: end: 201810
  2. LEVOTHYROXINE. [Concomitant]
     Active Substance: LEVOTHYROXINE
  3. ALEVE [Concomitant]
     Active Substance: NAPROXEN SODIUM
  4. CABOMETYX [Suspect]
     Active Substance: CABOZANTINIB S-MALATE
     Dosage: UNK
     Route: 048
     Dates: start: 20190128
  5. ZOFRAN [Concomitant]
     Active Substance: ONDANSETRON HYDROCHLORIDE
     Dosage: UNK
  6. PROCHLORPERAZINE. [Concomitant]
     Active Substance: PROCHLORPERAZINE
  7. VITAMIN C [Concomitant]
     Active Substance: ASCORBIC ACID
  8. POTASSIUM CHLORIDE. [Concomitant]
     Active Substance: POTASSIUM CHLORIDE
  9. ZOMETA [Concomitant]
     Active Substance: ZOLEDRONIC ACID
  10. ELIQUIS [Concomitant]
     Active Substance: APIXABAN
     Dosage: UNK
  11. CABOMETYX [Suspect]
     Active Substance: CABOZANTINIB S-MALATE
     Indication: RENAL CANCER
     Dosage: 60 MG, QD
     Route: 048
     Dates: start: 20170629
  12. VITAMIN B12 [Concomitant]
     Active Substance: CYANOCOBALAMIN
  13. LISINOPRIL. [Concomitant]
     Active Substance: LISINOPRIL
  14. TYLENOL [Concomitant]
     Active Substance: ACETAMINOPHEN
  15. VITAMIN D3 [Concomitant]
     Active Substance: CHOLECALCIFEROL
  16. CABOMETYX [Suspect]
     Active Substance: CABOZANTINIB S-MALATE
     Dosage: 40 MG, QD (2 TABLETS OF 20 MG)
     Route: 048
     Dates: start: 201810, end: 20181231
  17. MAGNESIUM [Concomitant]
     Active Substance: MAGNESIUM
  18. IRON [Concomitant]
     Active Substance: IRON
     Dosage: UNK
  19. OSCAL 500+D [Concomitant]
     Dosage: UNK

REACTIONS (5)
  - Procedural pain [Unknown]
  - Post procedural swelling [Unknown]
  - Hypothermia [Recovered/Resolved]
  - Limb deformity [Unknown]
  - Vomiting [Recovered/Resolved]

NARRATIVE: CASE EVENT DATE: 20181231
